FAERS Safety Report 7068285-3 (Version None)
Quarter: 2010Q4

REPORT INFORMATION
  Report Type: 
  Country: None (occurrence: None)
  Receive Date: 20101028
  Receipt Date: 20101025
  Transmission Date: 20110411
  Serious: Yes (Hospitalization)
  Sender: FDA-Public Use
  Company Number: FR-WYE-G06851510

PATIENT
  Sex: Male
  Weight: 20.4 kg

DRUGS (1)
  1. IBUPROFEN (ADVIL) [Suspect]
     Indication: EAR PAIN
     Dosage: A TOTAL OF 3 DOSES IN 2 DAYS
     Route: 048
     Dates: start: 20100624, end: 20100626

REACTIONS (2)
  - PAROTITIS [None]
  - TYMPANIC MEMBRANE HYPERAEMIA [None]
